FAERS Safety Report 7006964-4 (Version None)
Quarter: 2010Q3

REPORT INFORMATION
  Report Type: 
  Country: None (occurrence: None)
  Receive Date: 20100922
  Receipt Date: 20100908
  Transmission Date: 20110219
  Serious: Yes (Hospitalization, Other)
  Sender: FDA-Public Use
  Company Number: NL-JNJFOC-20100905977

PATIENT
  Age: 79 Year
  Sex: Female

DRUGS (1)
  1. ZALDIAR [Suspect]
     Indication: SPINAL COMPRESSION FRACTURE
     Route: 048

REACTIONS (5)
  - DELIRIUM [None]
  - EXCORIATION [None]
  - FALL [None]
  - RIB FRACTURE [None]
  - SPINAL FRACTURE [None]
